FAERS Safety Report 12277699 (Version 2)
Quarter: 2016Q2

REPORT INFORMATION
  Report Type: Spontaneous
  Country: FR (occurrence: FR)
  Receive Date: 20160418
  Receipt Date: 20160421
  Transmission Date: 20160815
  Serious: Yes (Death)
  Sender: FDA-Public Use
  Company Number: FR-JNJFOC-20160413286

PATIENT
  Age: 86 Year
  Sex: Female

DRUGS (11)
  1. EBIXA [Concomitant]
     Active Substance: MEMANTINE HYDROCHLORIDE
     Route: 048
     Dates: end: 20160222
  2. INEXIUM [Concomitant]
     Active Substance: ESOMEPRAZOLE
     Route: 048
     Dates: end: 20160222
  3. ROCEPHINE [Concomitant]
     Active Substance: CEFTRIAXONE SODIUM
     Route: 048
     Dates: start: 20160213, end: 20160222
  4. RISPERDAL [Suspect]
     Active Substance: RISPERIDONE
     Indication: PRODUCT USED FOR UNKNOWN INDICATION
     Dosage: 0.25 MG IN THE MORNING AND 0.5 MG IN THE EVENING
     Route: 048
     Dates: end: 20160222
  5. CARDENSIEL [Concomitant]
     Active Substance: BISOPROLOL FUMARATE
     Route: 048
     Dates: end: 20160222
  6. LASILIX [Concomitant]
     Active Substance: FUROSEMIDE
     Route: 048
     Dates: end: 20160222
  7. KEPPRA [Concomitant]
     Active Substance: LEVETIRACETAM
     Route: 065
     Dates: end: 20160222
  8. DEROXAT [Concomitant]
     Active Substance: PAROXETINE HYDROCHLORIDE
     Indication: DEMENTIA ALZHEIMER^S TYPE
     Route: 048
     Dates: end: 20160222
  9. FLUINDIONE [Suspect]
     Active Substance: FLUINDIONE
     Indication: CARDIAC DISORDER
     Route: 048
     Dates: end: 20160218
  10. XANAX [Concomitant]
     Active Substance: ALPRAZOLAM
     Route: 048
     Dates: end: 20160222
  11. FORLAX [Concomitant]
     Active Substance: POLYETHYLENE GLYCOL 4000
     Dosage: IN THE MORNING
     Route: 048
     Dates: end: 20160222

REACTIONS (1)
  - Pulmonary embolism [Fatal]

NARRATIVE: CASE EVENT DATE: 20160217
